FAERS Safety Report 17334743 (Version 1)
Quarter: 2020Q1

REPORT INFORMATION
  Report Type: Spontaneous
  Country: GB (occurrence: GB)
  Receive Date: 20200128
  Receipt Date: 20200128
  Transmission Date: 20200409
  Serious: Yes (Hospitalization)
  Sender: FDA-Public Use
  Company Number: GB-TEVA-2020-GB-1175198

PATIENT

DRUGS (2)
  1. WARFARIN [Suspect]
     Active Substance: WARFARIN
     Indication: ANTICOAGULANT THERAPY
     Route: 065
  2. MICONAZOLE. [Interacting]
     Active Substance: MICONAZOLE
     Route: 065

REACTIONS (3)
  - Drug interaction [Unknown]
  - Haematuria [Unknown]
  - International normalised ratio increased [Recovered/Resolved]
